FAERS Safety Report 23947691 (Version 3)
Quarter: 2024Q4

REPORT INFORMATION
  Report Type: Spontaneous
  Country: US (occurrence: US)
  Receive Date: 20240606
  Receipt Date: 20241213
  Transmission Date: 20250115
  Serious: No
  Sender: BIOMARIN
  Company Number: US-BIOMARINAP-US-2024-158198

PATIENT

DRUGS (2)
  1. KUVAN [Suspect]
     Active Substance: SAPROPTERIN DIHYDROCHLORIDE
     Indication: Phenylketonuria
     Dosage: 2 GRAM, QD
     Route: 065
     Dates: start: 20210503
  2. Glytactin build 20/20 [Concomitant]
     Indication: Phenylketonuria
     Dosage: UNK, TID

REACTIONS (1)
  - Maternal exposure during pregnancy [Recovered/Resolved]
